FAERS Safety Report 21985945 (Version 1)
Quarter: 2023Q1

REPORT INFORMATION
  Report Type: Spontaneous
  Country: FR (occurrence: FR)
  Receive Date: 20230213
  Receipt Date: 20230213
  Transmission Date: 20230417
  Serious: Yes (Death, Other)
  Sender: FDA-Public Use
  Company Number: None

PATIENT
  Age: 98 Year
  Sex: Female

DRUGS (4)
  1. TRANSDERM SCOP [Suspect]
     Active Substance: SCOPOLAMINE
     Indication: Product used for unknown indication
     Dosage: AT AN UNSPECIFIED DOSE AND FREQUENCY, NP
     Route: 065
     Dates: start: 20221205
  2. MORPHINE [Suspect]
     Active Substance: MORPHINE
     Indication: Pain
     Dosage: 24 MILLIGRAMS (MG) EVERY 24 HOURS
     Route: 058
     Dates: start: 20221124
  3. MORPHINE [Suspect]
     Active Substance: MORPHINE
     Dosage: 3 MILLIGRAMS (MG)
     Route: 042
     Dates: start: 20221124
  4. MIDAZOLAM [Suspect]
     Active Substance: MIDAZOLAM
     Indication: Agitation
     Dosage: 5 MILLIGRAMS (MG)
     Route: 058
     Dates: start: 20221201

REACTIONS (2)
  - Apnoea [Fatal]
  - Pneumonia aspiration [Fatal]

NARRATIVE: CASE EVENT DATE: 20221204
